FAERS Safety Report 25557467 (Version 2)
Quarter: 2025Q3

REPORT INFORMATION
  Report Type: Report from Study
  Country: MX (occurrence: MX)
  Receive Date: 20250715
  Receipt Date: 20250721
  Transmission Date: 20251020
  Serious: Yes (Life-Threatening)
  Sender: NOVARTIS
  Company Number: MX-002147023-NVSC2025MX105097

PATIENT
  Age: 62 Year
  Sex: Female

DRUGS (4)
  1. KISQALI [Suspect]
     Active Substance: RIBOCICLIB SUCCINATE
     Indication: Breast cancer
     Dosage: 3 DOSAGE FORM (200 MG), QD
     Route: 048
     Dates: start: 202501
  2. KISQALI [Suspect]
     Active Substance: RIBOCICLIB SUCCINATE
     Dosage: 3 DOSAGE FORM (200 MG), QD
     Route: 048
     Dates: end: 20250702
  3. LETROZOLE [Suspect]
     Active Substance: LETROZOLE
     Indication: Breast cancer
     Dosage: 1 DOSAGE FORM, QD
     Route: 048
     Dates: start: 202501, end: 20250702
  4. TELMISARTAN [Suspect]
     Active Substance: TELMISARTAN
     Indication: Hypertension
     Dosage: 1 DOSAGE FORM, QD
     Route: 048

REACTIONS (21)
  - Feeling abnormal [Recovered/Resolved]
  - Dizziness [Recovered/Resolved]
  - Nausea [Unknown]
  - Fatigue [Unknown]
  - Asthenia [Unknown]
  - Weight increased [Recovered/Resolved]
  - Dysstasia [Unknown]
  - Constipation [Recovered/Resolved]
  - Hypotension [Recovered/Resolved]
  - Malaise [Unknown]
  - Liver disorder [Unknown]
  - Bone pain [Recovering/Resolving]
  - Headache [Recovering/Resolving]
  - Dyspnoea [Not Recovered/Not Resolved]
  - Illness [Not Recovered/Not Resolved]
  - Decreased immune responsiveness [Unknown]
  - Feeding disorder [Recovering/Resolving]
  - Pain [Recovered/Resolved]
  - Herpes virus infection [Unknown]
  - Vomiting [Recovered/Resolved]
  - Dyspnoea [Recovered/Resolved]

NARRATIVE: CASE EVENT DATE: 20250101
